FAERS Safety Report 21136870 (Version 1)
Quarter: 2022Q3

REPORT INFORMATION
  Report Type: Spontaneous
  Country: US (occurrence: None)
  Receive Date: 20220726
  Receipt Date: 20220726
  Transmission Date: 20221027
  Serious: Yes (Other)
  Sender: FDA-Public Use
  Company Number: None

PATIENT
  Age: 17 Year
  Sex: Female
  Weight: 75.5 kg

DRUGS (8)
  1. PAXLOVID [Suspect]
     Active Substance: NIRMATRELVIR\RITONAVIR
     Indication: COVID-19 treatment
     Dosage: OTHER FREQUENCY : #3 QAM + #3 QPM;?
     Route: 048
     Dates: start: 20220721, end: 20220724
  2. albuterol 2.5mg/3ml [Concomitant]
     Dates: start: 20220721
  3. TYLENOL [Concomitant]
     Active Substance: ACETAMINOPHEN
     Dates: start: 20220721
  4. vitamin C 500mg [Concomitant]
     Dates: start: 20220721
  5. vitamin d 400 units [Concomitant]
     Dates: start: 20220721
  6. medroxyprogesterone 150mg/ml [Concomitant]
     Dates: start: 20220711
  7. guaifenesin 100mg/5ml [Concomitant]
     Dates: start: 20220721
  8. pulmonate nebulizer [Concomitant]
     Dates: start: 20220721

REACTIONS (1)
  - Dermatitis allergic [None]

NARRATIVE: CASE EVENT DATE: 20220724
